FAERS Safety Report 14763447 (Version 1)
Quarter: 2018Q2

REPORT INFORMATION
  Report Type: Spontaneous
  Country: US (occurrence: US)
  Receive Date: 20180416
  Receipt Date: 20180416
  Transmission Date: 20180711
  Serious: Yes (Other)
  Sender: FDA-Public Use
  Company Number: US-MYLANLABS-2018M1021347

PATIENT
  Sex: Female

DRUGS (1)
  1. TERAZOSIN CAPSULES, USP [Suspect]
     Active Substance: TERAZOSIN HYDROCHLORIDE
     Indication: HYPERTENSION
     Dosage: 1 MG, UNK
     Route: 048

REACTIONS (6)
  - Genital burning sensation [Not Recovered/Not Resolved]
  - Genital abscess [Not Recovered/Not Resolved]
  - Hyperhidrosis [Not Recovered/Not Resolved]
  - Adverse event [Not Recovered/Not Resolved]
  - Hormone level abnormal [Not Recovered/Not Resolved]
  - Vaginal odour [Not Recovered/Not Resolved]
